FAERS Safety Report 18184876 (Version 2)
Quarter: 2025Q3

REPORT INFORMATION
  Report Type: Spontaneous
  Country: EU (occurrence: EU)
  Receive Date: 20200824
  Receipt Date: 20250823
  Transmission Date: 20251021
  Serious: Yes (Life-Threatening, Hospitalization)
  Sender: AUROBINDO
  Company Number: EU-POLPHARMA-129688-131296

PATIENT
  Age: 43 Year
  Sex: Male

DRUGS (7)
  1. LINEZOLID [Suspect]
     Active Substance: LINEZOLID
     Indication: Superinfection bacterial
     Dosage: 500 MILLIGRAM, TWO TIMES A DAY
     Route: 042
  2. CEFTRIAXONE [Suspect]
     Active Substance: CEFTRIAXONE
     Indication: Superinfection bacterial
     Dosage: 2 GRAM, ONCE A DAY
     Route: 042
  3. MEROPENEM [Suspect]
     Active Substance: MEROPENEM
     Indication: Superinfection bacterial
     Dosage: 1 GRAM, 3 TIMES A DAY
     Route: 042
  4. CHLOROQUINE [Suspect]
     Active Substance: CHLOROQUINE
     Indication: Product used for unknown indication
     Route: 048
  5. CLARITHROMYCIN [Suspect]
     Active Substance: CLARITHROMYCIN
     Indication: Superinfection bacterial
     Route: 048
  6. NOREPINEPHRINE [Concomitant]
     Active Substance: NOREPINEPHRINE
     Indication: Shock symptom
     Route: 042
  7. FUROSEMIDE [Concomitant]
     Active Substance: FUROSEMIDE
     Indication: Polyuria
     Route: 065

REACTIONS (2)
  - Drug ineffective [Unknown]
  - Therapeutic product effect incomplete [Unknown]
